FAERS Safety Report 8364374-1 (Version None)
Quarter: 2012Q2

REPORT INFORMATION
  Report Type: 
  Country: None (occurrence: None)
  Receive Date: 20120516
  Receipt Date: 20120504
  Transmission Date: 20120825
  Serious: Yes (Other)
  Sender: FDA-Public Use
  Company Number: US-JNJFOC-20120210692

PATIENT
  Sex: Female
  Weight: 89.36 kg

DRUGS (2)
  1. SIMPONI [Suspect]
     Route: 058
     Dates: start: 20110401
  2. SIMPONI [Suspect]
     Indication: PSORIATIC ARTHROPATHY
     Route: 058
     Dates: start: 20120301

REACTIONS (7)
  - PSORIATIC ARTHROPATHY [None]
  - ABNORMAL LOSS OF WEIGHT [None]
  - DEVICE MALFUNCTION [None]
  - ARTHRALGIA [None]
  - DRUG DOSE OMISSION [None]
  - INSOMNIA [None]
  - PSORIASIS [None]
